FAERS Safety Report 17688981 (Version 1)
Quarter: 2020Q2

REPORT INFORMATION
  Report Type: Spontaneous
  Country: US (occurrence: US)
  Receive Date: 20200421
  Receipt Date: 20200421
  Transmission Date: 20200714
  Serious: Yes (Hospitalization)
  Sender: FDA-Public Use
  Company Number: US-VERTEX PHARMACEUTICALS-2020-009100

PATIENT
  Age: 32 Year
  Sex: Female
  Weight: 45 kg

DRUGS (11)
  1. KITABIS PAK [Concomitant]
     Active Substance: TOBRAMYCIN
  2. SINGULAIR [Concomitant]
     Active Substance: MONTELUKAST SODIUM
  3. ALBUTEROL SULFATE. [Concomitant]
     Active Substance: ALBUTEROL SULFATE
  4. BACTRIM [Concomitant]
     Active Substance: SULFAMETHOXAZOLE\TRIMETHOPRIM
  5. AZITHROMYCIN ANHYDROUS. [Concomitant]
     Active Substance: AZITHROMYCIN ANHYDROUS
  6. PULMOZYME [Concomitant]
     Active Substance: DORNASE ALFA
  7. VITAMIN D [COLECALCIFEROL] [Concomitant]
     Active Substance: CHOLECALCIFEROL
  8. TRIKAFTA [Suspect]
     Active Substance: ELEXACAFTOR\IVACAFTOR\TEZACAFTOR
     Indication: CYSTIC FIBROSIS
     Dosage: 2 TABS (100MG ELEXACAFTOR/50MG TEZACAFTOR/75MG IVACAFTOR) IN AM AND 1 TAB (150MG IVACAFTOR) IN PM
     Route: 048
  9. CAYSTON [Concomitant]
     Active Substance: AZTREONAM
  10. PANCREAZE [AMYLASE;LIPASE;PROTEASE] [Concomitant]
  11. PREVACID [Concomitant]
     Active Substance: LANSOPRAZOLE

REACTIONS (1)
  - Infection [Unknown]

NARRATIVE: CASE EVENT DATE: 20200301
